FAERS Safety Report 7909934-4 (Version None)
Quarter: 2011Q4

REPORT INFORMATION
  Report Type: 
  Country: None (occurrence: None)
  Receive Date: 20111111
  Receipt Date: 20111107
  Transmission Date: 20120403
  Serious: Yes (Other)
  Sender: FDA-Public Use
  Company Number: DE-ROCHE-1010701

PATIENT
  Age: 78 Year
  Sex: Female

DRUGS (4)
  1. CALCIGEN [Concomitant]
  2. SPIRIVA [Concomitant]
  3. BONIVA [Suspect]
     Indication: OSTEOPOROSIS
     Route: 042
  4. MARCUMAR [Concomitant]

REACTIONS (2)
  - CEREBROVASCULAR ACCIDENT [None]
  - BONE PAIN [None]
